FAERS Safety Report 5909709-1 (Version None)
Quarter: 2008Q4

REPORT INFORMATION
  Report Type: 
  Country: None (occurrence: None)
  Receive Date: 20081006
  Receipt Date: 20081006
  Transmission Date: 20090506
  Serious: Yes (Hospitalization)
  Sender: FDA-Public Use
  Company Number: None

PATIENT
  Sex: Female

DRUGS (12)
  1. AVONEX [Suspect]
     Indication: MULTIPLE SCLEROSIS
     Dosage: 30MCG WEEKLY IM
     Route: 030
     Dates: start: 20080903
  2. LANOXIN [Concomitant]
  3. TOPROL-XL [Concomitant]
  4. AMILORIDE HYDROCHLORIDE [Concomitant]
  5. ZOLOFT [Concomitant]
  6. POTASSIUM CHLORIDE [Concomitant]
  7. NEURONTIN [Concomitant]
  8. ASPIRIN [Concomitant]
  9. TYLENOL (CAPLET) [Concomitant]
  10. VITAMIN B COMPLEX CAP [Concomitant]
  11. IRON [Concomitant]
  12. ZANAFLEX [Concomitant]

REACTIONS (3)
  - CONDITION AGGRAVATED [None]
  - FALL [None]
  - PRODUCT QUALITY ISSUE [None]
